FAERS Safety Report 23591637 (Version 2)
Quarter: 2024Q2

REPORT INFORMATION
  Report Type: Spontaneous
  Country: US (occurrence: US)
  Receive Date: 20240304
  Receipt Date: 20240618
  Transmission Date: 20240716
  Serious: No
  Sender: FDA-Public Use
  Company Number: US-SA-SAC20240229000195

PATIENT
  Age: 46 Year
  Sex: Male

DRUGS (1)
  1. DUPIXENT [Suspect]
     Active Substance: DUPILUMAB
     Indication: Eosinophilic oesophagitis
     Dosage: 300 MG, QW
     Route: 058

REACTIONS (7)
  - Pain [Unknown]
  - Fatigue [Unknown]
  - Gastrointestinal disorder [Unknown]
  - Influenza like illness [Unknown]
  - Hepatic enzyme increased [Unknown]
  - Haemoglobin decreased [Unknown]
  - Eye inflammation [Unknown]

NARRATIVE: CASE EVENT DATE: 20240501
